FAERS Safety Report 4459340-2 (Version None)
Quarter: 2004Q3

REPORT INFORMATION
  Report Type: 
  Country: None (occurrence: None)
  Receive Date: 20040924
  Receipt Date: 20040907
  Transmission Date: 20050211
  Serious: Yes (Hospitalization)
  Sender: FDA-Public Use
  Company Number: 4052

PATIENT
  Age: 50 Year
  Sex: Male

DRUGS (4)
  1. NITROGLYCERIN [Suspect]
     Indication: CHEST PAIN
     Dosage: ONE TABLET, SUBLINGUAL
     Route: 060
     Dates: start: 20040201
  2. TRAMADOL HCL [Concomitant]
  3. PROTONIX [Concomitant]
  4. VIOXX [Concomitant]

REACTIONS (3)
  - DRUG INEFFECTIVE [None]
  - MYOCARDIAL INFARCTION [None]
  - PHARMACEUTICAL PRODUCT COMPLAINT [None]
